FAERS Safety Report 24692077 (Version 1)
Quarter: 2024Q4

REPORT INFORMATION
  Report Type: Spontaneous
  Country: US (occurrence: None)
  Receive Date: 20241203
  Receipt Date: 20241203
  Transmission Date: 20250115
  Serious: Yes (Death)
  Sender: Public
  Company Number: None

PATIENT
  Sex: Female

DRUGS (4)
  1. ALECENSA [Suspect]
     Active Substance: ALECTINIB HYDROCHLORIDE
     Indication: Metastases to central nervous system
     Dosage: FREQ: TAKE 4 CAPSULES BY MOUTH TWICE DAILY WITH BREAKFAST AND DINNER.?
     Route: 048
     Dates: start: 20161230
  2. CALCIUM GARB [Concomitant]
  3. GEMTESA [Concomitant]
     Active Substance: VIBEGRON
  4. JARDIANCE [Concomitant]
     Active Substance: EMPAGLIFLOZIN

REACTIONS (1)
  - Death [None]
